FAERS Safety Report 6529375-4 (Version None)
Quarter: 2010Q1

REPORT INFORMATION
  Report Type: 
  Country: None (occurrence: None)
  Receive Date: 20100104
  Receipt Date: 20091225
  Transmission Date: 20100710
  Serious: Yes (Hospitalization)
  Sender: FDA-Public Use
  Company Number: WAES 0812USA04482

PATIENT
  Age: 68 Year
  Sex: Female

DRUGS (13)
  1. HYZAAR [Suspect]
     Indication: HYPERTENSION
     Dosage: 1 TAB/DAILY PO
     Route: 048
     Dates: start: 20070501, end: 20080513
  2. BASEN OD [Concomitant]
  3. BUFFERIN [Concomitant]
  4. EBASTINE [Concomitant]
  5. GASTER [Concomitant]
  6. ITOROL [Concomitant]
  7. JUVELA N [Concomitant]
  8. LANDEL [Concomitant]
  9. LIPOVAS [Concomitant]
  10. LOCHOL (FLUVASTATIN SODIUM) [Concomitant]
  11. MG OXIDE [Concomitant]
  12. PANALDINE [Concomitant]
  13. DISOPYRAMIDE [Concomitant]

REACTIONS (2)
  - DRUG INEFFECTIVE [None]
  - OSTEOARTHRITIS [None]
